FAERS Safety Report 4440488-3 (Version None)
Quarter: 2004Q3

REPORT INFORMATION
  Report Type: 
  Country: None (occurrence: None)
  Receive Date: 20040826
  Receipt Date: 20040302
  Transmission Date: 20050211
  Serious: Yes (Other)
  Sender: FDA-Public Use
  Company Number: 2004-06746

PATIENT
  Age: 40 Year
  Sex: Male

DRUGS (3)
  1. VISTIDE [Suspect]
     Indication: PROGRESSIVE MULTIFOCAL LEUKOENCEPHALOPATHY
     Dosage: 5 MG/KG, EVERY 2 WEEKS, INTRAVENOUS
     Route: 042
     Dates: start: 20031101, end: 20040302
  2. DRUG COCKTAIL (ANTIVIRALS FOR SYSTEMIC USE) [Concomitant]
  3. PROBENECID [Concomitant]

REACTIONS (2)
  - DIALYSIS [None]
  - MEDICATION ERROR [None]
